FAERS Safety Report 6750178-X (Version None)
Quarter: 2010Q2

REPORT INFORMATION
  Report Type: 
  Country: None (occurrence: None)
  Receive Date: 20100601
  Receipt Date: 20100521
  Transmission Date: 20101027
  Serious: Yes (Death)
  Sender: FDA-Public Use
  Company Number: GB-PFIZER INC-2010064134

PATIENT
  Age: 9 Year
  Sex: Male

DRUGS (9)
  1. SOMATROPIN [Suspect]
     Indication: GROWTH HORMONE DEFICIENCY
     Dosage: 1.2 MG, 1X/DAY
  2. LEVOTHYROXINE SODIUM [Concomitant]
     Dosage: 200 UG, 1X/DAY
  3. DESMOPRESSIN [Concomitant]
     Dosage: 200 UG, 3X/DAY
  4. VALPROATE SODIUM [Concomitant]
     Dosage: 800 MG, 2X/DAY
  5. PHENYTOIN [Concomitant]
     Dosage: 175 MG, 1X/DAY
  6. GABAPENTIN [Concomitant]
     Dosage: 900 MG, 1X/DAY
  7. CARBAMAZEPINE [Concomitant]
     Dosage: 400 MG, 1X/DAY
  8. NITRAZEPAM [Concomitant]
     Dosage: 2 MG, 1X/DAY
  9. HYDROCORTISONE [Concomitant]
     Dosage: 60 MG, 1X/DAY

REACTIONS (1)
  - DEATH [None]
